FAERS Safety Report 8826482 (Version 1)
Quarter: 2012Q4

REPORT INFORMATION
  Report Type: 
  Country: US (occurrence: US)
  Receive Date: 20121008
  Receipt Date: 20121008
  Transmission Date: 20130627
  Serious: Yes (Hospitalization, Other)
  Sender: FDA-Public Use
  Company Number: PHEH2012US018606

PATIENT
  Sex: Female
  Weight: 67 kg

DRUGS (17)
  1. GILENYA [Suspect]
     Indication: MULTIPLE SCLEROSIS
     Dosage: 0.5 mg
     Route: 048
     Dates: start: 201111, end: 20120904
  2. LAMOTRIGINE [Concomitant]
     Indication: CONVULSION
     Dosage: 150 mg, BID
     Route: 048
  3. LAMOTRIGINE [Concomitant]
     Dosage: 300 mg, BID
  4. FOLIC ACID [Concomitant]
     Dosage: 1 mg, TID
  5. PRENATAL [Concomitant]
  6. TYLENOL [Concomitant]
     Indication: HEADACHE
  7. IMITREX [Concomitant]
     Indication: HEADACHE
     Dosage: 100 mg, PRN repeat 2 hr later max 200mg
  8. ELAVIL [Concomitant]
     Dosage: 10 mg, UNK
  9. ELAVIL [Concomitant]
     Dosage: 40 mg, 8 pm every week
  10. NORCO [Concomitant]
     Dosage: 10-325 mg every 4-6 hours PRN
  11. VALIUM [Concomitant]
  12. LYRICA [Concomitant]
     Dosage: 50 mg, UNK
  13. PREDNISONE [Concomitant]
     Route: 048
  14. ALBUTEROL [Concomitant]
     Dosage: 1-2 puffs every 4-6 hours PRN
  15. NEXIUM [Concomitant]
     Dosage: 40 mg, UNK
     Route: 048
  16. HYDROMORPHONE HYDROCHLORIDE [Concomitant]
     Dosage: 8 mg, extended release 24 hours
     Route: 048
  17. HYDROMORPHONE HYDROCHLORIDE [Concomitant]
     Dosage: 16 mg, extended release 24 hrUNK
     Route: 048

REACTIONS (12)
  - Borderline personality disorder [Unknown]
  - Apathy [Unknown]
  - Emotional disorder [Unknown]
  - Executive dysfunction [Unknown]
  - Convulsion [Unknown]
  - Hemiparesis [Unknown]
  - Somnolence [Unknown]
  - Hypoaesthesia [Unknown]
  - Vomiting [Unknown]
  - Pain [Unknown]
  - Migraine [Unknown]
  - Exposure during pregnancy [Unknown]
